FAERS Safety Report 18535784 (Version 1)
Quarter: 2020Q4

REPORT INFORMATION
  Report Type: Report from Study
  Country: ES (occurrence: ES)
  Receive Date: 20201123
  Receipt Date: 20201123
  Transmission Date: 20210114
  Serious: Yes (Other)
  Sender: FDA-Public Use
  Company Number: ES-INCYTE CORPORATION-2019IN010966

PATIENT

DRUGS (8)
  1. JAKAVI [Suspect]
     Active Substance: RUXOLITINIB
     Dosage: 25 (UNSPECIFIED UNIT)
     Route: 048
     Dates: start: 20181105, end: 20200103
  2. CIPROFLOXACIN. [Concomitant]
     Active Substance: CIPROFLOXACIN
     Indication: SKIN ULCER
     Dosage: 500 OT
     Route: 065
     Dates: start: 20171110, end: 20171116
  3. HYDREA [Concomitant]
     Active Substance: HYDROXYUREA
     Indication: POLYCYTHAEMIA VERA
     Dosage: 1500 UNK
     Route: 065
     Dates: start: 20161111, end: 20171110
  4. JAKAVI [Suspect]
     Active Substance: RUXOLITINIB
     Indication: POLYCYTHAEMIA VERA
     Dosage: 20 (UNSPECIFIED UNIT)
     Route: 048
     Dates: start: 20171110, end: 20180610
  5. JAKAVI [Suspect]
     Active Substance: RUXOLITINIB
     Dosage: 30 (UNSPECIFIED UNIT)
     Route: 048
     Dates: start: 20180611, end: 20181104
  6. ACETILSALICILSKABE [Concomitant]
     Indication: THROMBOSIS PROPHYLAXIS
     Dosage: 100 MG
     Route: 065
     Dates: start: 20130429
  7. HYDREA [Concomitant]
     Active Substance: HYDROXYUREA
     Dosage: 1500 UNK
     Route: 065
     Dates: start: 20171110
  8. JAKAVI [Suspect]
     Active Substance: RUXOLITINIB
     Dosage: 25 (UNSPECIFIED UNIT)
     Route: 048
     Dates: start: 20200103

REACTIONS (3)
  - Sciatica [Recovered/Resolved]
  - Solar lentigo [Recovering/Resolving]
  - Pyoderma [Recovered/Resolved]

NARRATIVE: CASE EVENT DATE: 20190319
